FAERS Safety Report 11436306 (Version 1)
Quarter: 2015Q3

REPORT INFORMATION
  Report Type: Spontaneous
  Country: US (occurrence: US)
  Receive Date: 20150821
  Receipt Date: 20150821
  Transmission Date: 20151125
  Serious: No
  Sender: FDA-Public Use
  Company Number: US-ELI_LILLY_AND_COMPANY-US201404008200

PATIENT
  Sex: Male

DRUGS (8)
  1. ATIVAN [Concomitant]
     Active Substance: LORAZEPAM
     Indication: ANXIETY
  2. CIALIS [Suspect]
     Active Substance: TADALAFIL
     Dosage: 15 MG, PRN
     Route: 048
  3. ENALAPRIL [Concomitant]
     Active Substance: ENALAPRIL
  4. CIALIS [Suspect]
     Active Substance: TADALAFIL
     Dosage: 5 MG, PRN
     Route: 048
  5. CIALIS [Suspect]
     Active Substance: TADALAFIL
     Dosage: 10 MG, PRN
     Route: 048
  6. CIALIS [Suspect]
     Active Substance: TADALAFIL
     Indication: ERECTILE DYSFUNCTION
     Dosage: 5 MG, QD
     Route: 048
  7. PLAVIX [Concomitant]
     Active Substance: CLOPIDOGREL BISULFATE
     Indication: ARTERIOSCLEROSIS
  8. LOPRESSOR [Concomitant]
     Active Substance: METOPROLOL TARTRATE

REACTIONS (4)
  - Drug ineffective [Unknown]
  - Drug administration error [Unknown]
  - Wrong patient received medication [Unknown]
  - Inappropriate schedule of drug administration [Unknown]
